FAERS Safety Report 21688541 (Version 4)
Quarter: 2023Q2

REPORT INFORMATION
  Report Type: Spontaneous
  Country: US (occurrence: US)
  Receive Date: 20221206
  Receipt Date: 20230629
  Transmission Date: 20230721
  Serious: No
  Sender: FDA-Public Use
  Company Number: US-PFIZER INC-PV202200094344

PATIENT
  Age: 56 Year
  Sex: Female
  Weight: 61.224 kg

DRUGS (1)
  1. TOVIAZ [Suspect]
     Active Substance: FESOTERODINE FUMARATE
     Indication: Bladder disorder
     Dosage: 8 MG, 1X/DAY
     Route: 048
     Dates: start: 202207

REACTIONS (1)
  - Mobility decreased [Unknown]
